FAERS Safety Report 7210097-1 (Version None)
Quarter: 2011Q1

REPORT INFORMATION
  Report Type: 
  Country: None (occurrence: None)
  Receive Date: 20110105
  Receipt Date: 20101229
  Transmission Date: 20110831
  Serious: Yes (Other)
  Sender: FDA-Public Use
  Company Number: US-BAYER-2011-000131

PATIENT

DRUGS (1)
  1. BETASERON [Suspect]
     Dosage: 8 MIU, UNK

REACTIONS (1)
  - NEUROPATHY PERIPHERAL [None]
